FAERS Safety Report 5297188-X (Version None)
Quarter: 2007Q2

REPORT INFORMATION
  Report Type: 
  Country: None (occurrence: None)
  Receive Date: 20070414
  Receipt Date: 20070405
  Transmission Date: 20071010
  Serious: Yes (Other)
  Sender: FDA-Public Use
  Company Number: IE-ABBOTT-06P-229-0351532-00

PATIENT
  Sex: Female

DRUGS (18)
  1. VALPROATE SODIUM [Suspect]
     Indication: EPILEPSY
     Route: 048
     Dates: start: 20050601
  2. VALPROATE SODIUM [Suspect]
     Dosage: DOSE INCREASED
     Route: 048
  3. ALPRAZOLAM [Interacting]
     Indication: ANXIETY
     Route: 048
     Dates: start: 20061110, end: 20061111
  4. ALPRAZOLAM [Interacting]
     Dates: start: 20061110, end: 20061111
  5. ETHOSUXIMIDE [Concomitant]
     Indication: EPILEPSY
     Route: 048
     Dates: start: 20050201
  6. PANTOPRAZOLE SODIUM [Concomitant]
     Indication: PROPHYLAXIS AGAINST GASTROINTESTINAL ULCER
     Route: 048
     Dates: start: 20050301
  7. SALMETEROL XINAFOATE [Concomitant]
     Indication: ASTHMA
     Route: 055
     Dates: start: 20050201
  8. BECOTIDE [Concomitant]
     Indication: ASTHMA
     Route: 055
     Dates: start: 20050201
  9. CETIRIZINE HYDROCHLORIDE [Concomitant]
     Indication: HYPERSENSITIVITY
     Route: 048
     Dates: start: 20050201
  10. MYSOLINE [Concomitant]
     Indication: EPILEPSY
     Route: 048
     Dates: start: 20050201
  11. ALENDRONATE SODIUM [Concomitant]
     Indication: OSTEOPOROSIS PROPHYLAXIS
     Route: 048
     Dates: start: 20050201
  12. DESLORATADINE [Concomitant]
     Indication: HYPERSENSITIVITY
     Route: 048
     Dates: start: 20050201
  13. PREDNISOLONE [Concomitant]
     Indication: HYPERSENSITIVITY
     Route: 048
     Dates: start: 20050201
  14. PREDNISOLONE [Concomitant]
     Indication: ASTHMA
  15. SINGULAIR [Concomitant]
     Indication: ASTHMA
     Route: 048
     Dates: start: 20050401
  16. PIRITON [Concomitant]
     Indication: HYPERSENSITIVITY
     Route: 048
     Dates: start: 20050301
  17. CALCIUM CARBONATE [Concomitant]
     Indication: MINERAL SUPPLEMENTATION
     Route: 048
     Dates: start: 20050201
  18. ANAPEN [Concomitant]
     Indication: ANAPHYLACTIC REACTION
     Route: 030

REACTIONS (3)
  - CONVULSION [None]
  - DRUG INEFFECTIVE [None]
  - DRUG INTERACTION [None]
